FAERS Safety Report 25910901 (Version 2)
Quarter: 2025Q4

REPORT INFORMATION
  Report Type: Other
  Country: GB (occurrence: GB)
  Receive Date: 20251013
  Receipt Date: 20251111
  Transmission Date: 20260117
  Serious: Yes (Other)
  Sender: GLENMARK
  Company Number: None

PATIENT
  Sex: Female
  Weight: 170 kg

DRUGS (4)
  1. EZETIMIBE [Suspect]
     Active Substance: EZETIMIBE
     Indication: Blood cholesterol increased
     Dosage: 10 MILLIGRAM, OD
     Route: 065
     Dates: start: 20250901, end: 20250915
  2. APIXABAN [Concomitant]
     Active Substance: APIXABAN
     Indication: Atrial fibrillation
     Dosage: UNK
     Route: 065
     Dates: start: 20241008
  3. BISOPROLOL [Concomitant]
     Active Substance: BISOPROLOL
     Indication: Supraventricular tachycardia
     Dosage: UNK
     Route: 065
     Dates: start: 20241003
  4. BISOPROLOL [Concomitant]
     Active Substance: BISOPROLOL
     Dosage: UNK (DOSE REDUCED)
     Route: 065

REACTIONS (6)
  - Extrasystoles [Not Recovered/Not Resolved]
  - Weight increased [Recovering/Resolving]
  - Abdominal distension [Unknown]
  - Headache [Recovered/Resolved with Sequelae]
  - Flatulence [Recovered/Resolved]
  - Dizziness [Recovering/Resolving]

NARRATIVE: CASE EVENT DATE: 20250901
